FAERS Safety Report 5512511-6 (Version None)
Quarter: 2007Q4

REPORT INFORMATION
  Report Type: 
  Country: None (occurrence: None)
  Receive Date: 20071112
  Receipt Date: 20070604
  Transmission Date: 20080405
  Serious: No
  Sender: FDA-Public Use
  Company Number: A0654065A

PATIENT
  Sex: Male

DRUGS (1)
  1. AVANDAMET [Suspect]
     Route: 048

REACTIONS (1)
  - VISION BLURRED [None]
